FAERS Safety Report 8941138 (Version 2)
Quarter: 2012Q4

REPORT INFORMATION
  Report Type: 
  Country: US (occurrence: US)
  Receive Date: 20121203
  Receipt Date: 20121231
  Transmission Date: 20130627
  Serious: Yes (Hospitalization, Other)
  Sender: FDA-Public Use
  Company Number: US-BAYER-2012-126015

PATIENT
  Age: 78 Year
  Sex: Male
  Weight: 100 kg

DRUGS (20)
  1. TRASYLOL [Suspect]
     Indication: CORONARY ARTERY BYPASS
     Dosage: 100 ml and 200 ml
     Route: 042
     Dates: start: 20060105, end: 20060105
  2. TRASYLOL [Suspect]
     Indication: CORONARY ARTERY BYPASS
     Dosage: Loading dose
  3. ISOFLURANE [Concomitant]
     Dosage: UNK
     Dates: start: 20060105, end: 20060105
  4. MIDAZOLAM [Concomitant]
     Dosage: UNK
     Dates: start: 20060105, end: 20060105
  5. SUCCINYLCHOLINE CHLORIDE [Concomitant]
     Dosage: UNK
     Dates: start: 20060105, end: 20060105
  6. VECURONIUM [Concomitant]
     Dosage: UNK
     Dates: start: 20060105, end: 20060105
  7. ROCURONIUM [Concomitant]
     Dosage: UNK
     Dates: start: 20060105, end: 20060105
  8. CEFAZOLIN [Concomitant]
     Dosage: UNK
     Dates: start: 20060105, end: 20060105
  9. LIDOCAINE [Concomitant]
     Dosage: UNK
     Dates: start: 20060105, end: 20060105
  10. DOPAMINE [Concomitant]
     Dosage: UNK
     Dates: start: 20060105, end: 20060105
  11. NITROGLYCERIN [Concomitant]
     Dosage: UNK
     Dates: start: 20060105, end: 20060105
  12. AMIODARONE [Concomitant]
     Dosage: UNK
     Dates: start: 20060105, end: 20060105
  13. PROTAMINE [Concomitant]
     Dosage: UNK
     Dates: start: 20060105, end: 20060105
  14. CALCIUM CHLORIDE [Concomitant]
     Dosage: UNK
     Dates: start: 20060105, end: 20060105
  15. MILRINONE [Concomitant]
     Dosage: UNK
     Dates: start: 20060105, end: 20060105
  16. LEVOPHED [Concomitant]
     Dosage: UNK
     Dates: start: 20060105, end: 20060105
  17. HEPARIN [Concomitant]
     Dosage: Pump prime
     Dates: start: 20060105, end: 20060105
  18. MANNITOL [Concomitant]
     Dosage: Pump Prime
     Dates: start: 20060105, end: 20060105
  19. SODIUM BICARBONATE [Concomitant]
     Dosage: Pump Prime
     Dates: start: 20060105, end: 20060105
  20. LASIX [Concomitant]
     Dosage: Pump prime
     Dates: start: 20060105, end: 20060105

REACTIONS (1)
  - Renal failure chronic [Not Recovered/Not Resolved]
